FAERS Safety Report 5828689-0 (Version None)
Quarter: 2008Q3

REPORT INFORMATION
  Report Type: 
  Country: None (occurrence: None)
  Receive Date: 20080730
  Receipt Date: 20080730
  Transmission Date: 20090109
  Serious: Yes (Other)
  Sender: FDA-Public Use
  Company Number: None

PATIENT
  Age: 44 Year
  Sex: Male
  Weight: 86.1834 kg

DRUGS (3)
  1. CITALOPRAM HYDROBROMIDE [Suspect]
     Indication: DEPRESSION
     Dosage: 30MG ONCE PER DAY PO
     Route: 048
     Dates: start: 20080715, end: 20080729
  2. CITALOPRAM HYDROBROMIDE [Suspect]
     Indication: POST-TRAUMATIC STRESS DISORDER
     Dosage: 30MG ONCE PER DAY PO
     Route: 048
     Dates: start: 20080715, end: 20080729
  3. HYDROXYCHLOROQUINE SULFATE [Suspect]
     Indication: ARTHRALGIA
     Dosage: 200MG TWICE PER DAY PO
     Route: 048
     Dates: start: 20080612, end: 20080724

REACTIONS (4)
  - EMOTIONAL DISORDER [None]
  - NO THERAPEUTIC RESPONSE [None]
  - THERAPEUTIC RESPONSE UNEXPECTED WITH DRUG SUBSTITUTION [None]
  - TREATMENT FAILURE [None]
